FAERS Safety Report 10514509 (Version 4)
Quarter: 2015Q2

REPORT INFORMATION
  Report Type: Spontaneous
  Country: US (occurrence: US)
  Receive Date: 20141013
  Receipt Date: 20150513
  Transmission Date: 20150821
  Serious: Yes (Other)
  Sender: FDA-Public Use
  Company Number: US-BAYER-2014-149982

PATIENT
  Age: 25 Year
  Sex: Female
  Weight: 49.89 kg

DRUGS (1)
  1. MIRENA [Suspect]
     Active Substance: LEVONORGESTREL
     Indication: CONTRACEPTION
     Dosage: 20 MCG/24HR, CONT
     Route: 015
     Dates: start: 20071030, end: 20121121

REACTIONS (7)
  - Uterine perforation [None]
  - Emotional distress [None]
  - Device breakage [None]
  - Device difficult to use [None]
  - Injury [None]
  - Pain [None]
  - Complication of device removal [None]

NARRATIVE: CASE EVENT DATE: 201210
